FAERS Safety Report 12335954 (Version 1)
Quarter: 2016Q2

REPORT INFORMATION
  Report Type: Spontaneous
  Country: US (occurrence: None)
  Receive Date: 20160504
  Receipt Date: 20160504
  Transmission Date: 20160815
  Serious: No
  Sender: FDA-Public Use
  Company Number: None

PATIENT
  Sex: Female
  Weight: 85.28 kg

DRUGS (1)
  1. NEXPLANON [Suspect]
     Active Substance: ETONOGESTREL

REACTIONS (10)
  - Implant site bruising [None]
  - Feeling abnormal [None]
  - Confusional state [None]
  - Mood altered [None]
  - Abdominal pain upper [None]
  - Implant site pain [None]
  - Speech disorder [None]
  - Emotional disorder [None]
  - Asthenia [None]
  - Eye pain [None]
